FAERS Safety Report 7391818-4 (Version None)
Quarter: 2011Q2

REPORT INFORMATION
  Report Type: 
  Country: None (occurrence: None)
  Receive Date: 20110404
  Receipt Date: 20110325
  Transmission Date: 20111010
  Serious: Yes (Hospitalization)
  Sender: FDA-Public Use
  Company Number: US-RB-023520-11

PATIENT
  Age: 33 Year
  Sex: Male

DRUGS (1)
  1. MUCINEX [Suspect]
     Indication: COUGH
     Dosage: ONE TABLET EVERY SIX HOURS, THEN TWO TABLETS AT ONCE
     Route: 048

REACTIONS (4)
  - DYSPNOEA [None]
  - OVERDOSE [None]
  - THROMBOSIS [None]
  - DIZZINESS [None]
